FAERS Safety Report 21793613 (Version 1)
Quarter: 2022Q4

REPORT INFORMATION
  Report Type: Spontaneous
  Country: FR (occurrence: FR)
  Receive Date: 20221229
  Receipt Date: 20221229
  Transmission Date: 20230113
  Serious: Yes (Other)
  Sender: FDA-Public Use
  Company Number: FR-GLAXOSMITHKLINE-FR2022EME187125

PATIENT
  Sex: Female
  Weight: 96 kg

DRUGS (3)
  1. MONTELUKAST SODIUM [Suspect]
     Active Substance: MONTELUKAST SODIUM
     Indication: Product used for unknown indication
     Dosage: UNK
     Dates: start: 2002
  2. NUCALA [Suspect]
     Active Substance: MEPOLIZUMAB
     Indication: Asthma
     Dosage: 100 MG, Z,  EVERY 4 WEEKS.
     Route: 058
     Dates: start: 20210424, end: 20220614
  3. FASENRA [Concomitant]
     Active Substance: BENRALIZUMAB
     Indication: Product used for unknown indication
     Dosage: 30 MG
     Route: 058
     Dates: start: 20221201

REACTIONS (4)
  - Gait disturbance [Not Recovered/Not Resolved]
  - Myalgia [Not Recovered/Not Resolved]
  - Arthralgia [Not Recovered/Not Resolved]
  - Back pain [Not Recovered/Not Resolved]

NARRATIVE: CASE EVENT DATE: 20220501
